FAERS Safety Report 4747989-9 (Version None)
Quarter: 2005Q3

REPORT INFORMATION
  Report Type: 
  Country: None (occurrence: None)
  Receive Date: 20050818
  Receipt Date: 20050803
  Transmission Date: 20060218
  Serious: Yes (Other)
  Sender: FDA-Public Use
  Company Number: BEWYE880103AUG05

PATIENT
  Sex: Female

DRUGS (1)
  1. ENBREL [Suspect]
     Indication: RHEUMATOID ARTHRITIS
     Dosage: 25 MG  2X / WEEK
     Route: 058
     Dates: start: 20030810, end: 20030824

REACTIONS (1)
  - MUCOSAL INFLAMMATION [None]
